FAERS Safety Report 5231343-X (Version None)
Quarter: 2007Q1

REPORT INFORMATION
  Report Type: 
  Country: None (occurrence: None)
  Receive Date: 20070206
  Receipt Date: 20070125
  Transmission Date: 20070707
  Serious: Yes (Other)
  Sender: FDA-Public Use
  Company Number: 2007CG00177

PATIENT
  Age: 20 Year
  Sex: Female

DRUGS (1)
  1. DIPRIVAN [Suspect]
     Indication: ANAESTHESIA
     Route: 013
     Dates: start: 20070124, end: 20070124

REACTIONS (6)
  - CYANOSIS [None]
  - INCORRECT ROUTE OF DRUG ADMINISTRATION [None]
  - JOINT SWELLING [None]
  - LIVEDO RETICULARIS [None]
  - PAIN IN EXTREMITY [None]
  - PULSE ABSENT [None]
